FAERS Safety Report 7827649-8 (Version None)
Quarter: 2011Q4

REPORT INFORMATION
  Report Type: 
  Country: None (occurrence: None)
  Receive Date: 20111018
  Receipt Date: 20110928
  Transmission Date: 20120403
  Serious: Yes (Hospitalization, Other)
  Sender: FDA-Public Use
  Company Number: 2011P1008923

PATIENT
  Age: 73 Year
  Sex: Female

DRUGS (5)
  1. HUMIRA [Concomitant]
  2. TRIAMCINOLONE ACETONIDE [Suspect]
     Indication: RASH
     Dosage: ;BID;TOP
     Route: 061
     Dates: start: 20110208, end: 20110210
  3. CARVEDILOL [Concomitant]
  4. PREDNISONE [Concomitant]
  5. ASPIRIN [Concomitant]

REACTIONS (8)
  - DRUG INEFFECTIVE [None]
  - WOUND SECRETION [None]
  - OEDEMA PERIPHERAL [None]
  - DYSPNOEA [None]
  - WHEEZING [None]
  - COUGH [None]
  - INTRA-ABDOMINAL HAEMORRHAGE [None]
  - SCAB [None]
